FAERS Safety Report 9563828 (Version 1)
Quarter: 2013Q3

REPORT INFORMATION
  Report Type: Spontaneous
  Country: US (occurrence: None)
  Receive Date: 20130926
  Receipt Date: 20130926
  Transmission Date: 20140515
  Serious: No
  Sender: FDA-Public Use
  Company Number: None

PATIENT
  Age: 64 Year
  Sex: Female
  Weight: 67.13 kg

DRUGS (1)
  1. CIPRO [Suspect]
     Indication: CELLULITIS
     Dosage: LEVAQUIN, TAKEN BY MOUTH
     Route: 048

REACTIONS (5)
  - Drug ineffective [None]
  - Urticaria [None]
  - Pruritus [None]
  - Confusional state [None]
  - Overdose [None]
